FAERS Safety Report 20132066 (Version 1)
Quarter: 2021Q4

REPORT INFORMATION
  Report Type: Spontaneous
  Country: US (occurrence: None)
  Receive Date: 20211130
  Receipt Date: 20211130
  Transmission Date: 20220303
  Serious: Yes (Other)
  Sender: FDA-Public Use
  Company Number: None

PATIENT
  Sex: Female
  Weight: 53.1 kg

DRUGS (5)
  1. VALTOCO [Suspect]
     Active Substance: DIAZEPAM
     Indication: Epilepsy
     Dosage: OTHER STRENGTH : MG/SPRAY;?OTHER ROUTE : IN EACH NOSTRIL FOR A TOTAL OF 20 MG;?
     Route: 050
  2. LAMCITAL ER [Concomitant]
  3. NIFEDIPINE [Concomitant]
     Active Substance: NIFEDIPINE
  4. ENALAPRIL [Concomitant]
  5. VALIUM [Concomitant]

REACTIONS (10)
  - Throat irritation [None]
  - Dry mouth [None]
  - Dry throat [None]
  - Asthenia [None]
  - Somnolence [None]
  - Salivary hypersecretion [None]
  - Pollakiuria [None]
  - Central nervous system stimulation [None]
  - Somnolence [None]
  - Micturition urgency [None]
